FAERS Safety Report 9644104 (Version 2)
Quarter: 2013Q4

REPORT INFORMATION
  Report Type: Spontaneous
  Country: DE (occurrence: DE)
  Receive Date: 20131024
  Receipt Date: 20131114
  Transmission Date: 20140711
  Serious: Yes (Hospitalization)
  Sender: FDA-Public Use
  Company Number: DE-B.I. PHARMACEUTICALS,INC./RIDGEFIELD-2013-BI-33632DE

PATIENT
  Age: 40 Year
  Sex: Male

DRUGS (1)
  1. ELIQUIS [Suspect]

REACTIONS (1)
  - Pulmonary embolism [Unknown]
